FAERS Safety Report 12610566 (Version 1)
Quarter: 2016Q3

REPORT INFORMATION
  Report Type: Spontaneous
  Country: SI (occurrence: SI)
  Receive Date: 20160801
  Receipt Date: 20160801
  Transmission Date: 20161109
  Serious: Yes (Other)
  Sender: FDA-Public Use
  Company Number: SI-ALKEM LABORATORIES LIMITED-SI-ALKEM-2016-00082

PATIENT
  Age: 19 Year
  Sex: Female

DRUGS (5)
  1. PALIPERIDONE. [Interacting]
     Active Substance: PALIPERIDONE
     Indication: PRODUCT USED FOR UNKNOWN INDICATION
     Dosage: 9 MG, UNK
  2. PALIPERIDONE. [Interacting]
     Active Substance: PALIPERIDONE
     Dosage: 3 MG, UNK
  3. CANNABIS [Interacting]
     Active Substance: CANNABIS SATIVA SUBSP. INDICA TOP
     Indication: PRODUCT USED FOR UNKNOWN INDICATION
     Dosage: UNKNOWN
  4. OLANZAPINE. [Interacting]
     Active Substance: OLANZAPINE
     Dosage: 300 MG, UNK
  5. OLANZAPINE. [Suspect]
     Active Substance: OLANZAPINE
     Indication: PRODUCT USED FOR UNKNOWN INDICATION
     Dosage: MAX UPTO 20 MG

REACTIONS (7)
  - Anticholinergic syndrome [Unknown]
  - Overdose [None]
  - Delirium [Recovered/Resolved]
  - Drug interaction [Unknown]
  - Confusional state [Unknown]
  - Suicidal ideation [Unknown]
  - Overdose [Unknown]
